FAERS Safety Report 7932104-0 (Version None)
Quarter: 2011Q4

REPORT INFORMATION
  Report Type: 
  Country: None (occurrence: None)
  Receive Date: 20111121
  Receipt Date: 20111116
  Transmission Date: 20120403
  Serious: Yes (Death, Other)
  Sender: FDA-Public Use
  Company Number: DE-ASTRAZENECA-2011SE69599

PATIENT
  Age: 0 Week

DRUGS (2)
  1. VALPROATE SODIUM [Suspect]
     Route: 064
  2. QUETIAPINE [Suspect]
     Route: 064

REACTIONS (2)
  - INTRA-UTERINE DEATH [None]
  - FOETAL GROWTH RESTRICTION [None]
